FAERS Safety Report 9379755 (Version 2)
Quarter: 2013Q3

REPORT INFORMATION
  Report Type: Spontaneous
  Country: JP (occurrence: JP)
  Receive Date: 20130702
  Receipt Date: 20130723
  Transmission Date: 20140515
  Serious: Yes (Hospitalization)
  Sender: FDA-Public Use
  Company Number: PHHY2013JP067307

PATIENT
  Age: 82 Year
  Sex: Male

DRUGS (3)
  1. SYMMETREL [Suspect]
     Indication: CEREBRAL INFARCTION
     Dosage: 100 MG, DAILY
     Route: 048
     Dates: end: 20121117
  2. HARNAL [Concomitant]
     Dosage: 0.2 MG, UNK
     Route: 048
     Dates: end: 20121119
  3. AMLODIPINE [Concomitant]
     Dosage: 5 MG, UNK
     Route: 048
     Dates: end: 20121119

REACTIONS (4)
  - Toxicity to various agents [Recovering/Resolving]
  - Communication disorder [Recovering/Resolving]
  - Renal impairment [Recovering/Resolving]
  - Azotaemia [Recovering/Resolving]
